FAERS Safety Report 9602466 (Version 1)
Quarter: 2013Q4

REPORT INFORMATION
  Report Type: Spontaneous
  Country: US (occurrence: US)
  Receive Date: 20131007
  Receipt Date: 20131007
  Transmission Date: 20140711
  Serious: Yes (Hospitalization)
  Sender: FDA-Public Use
  Company Number: US-PFIZER INC-2013284482

PATIENT
  Age: 33 Year
  Sex: Female
  Weight: 72.56 kg

DRUGS (3)
  1. LYRICA [Suspect]
     Indication: NEURALGIA
     Dosage: 75 MG, 2X/DAY
     Route: 048
     Dates: start: 20130629, end: 2013
  2. LYRICA [Suspect]
     Dosage: 100 MG, 2X/DAY
     Route: 048
     Dates: start: 2013, end: 20130923
  3. HYDROCODONE [Concomitant]
     Dosage: UNK

REACTIONS (11)
  - Disturbance in attention [Recovered/Resolved]
  - Aggression [Recovered/Resolved]
  - Irritability [Recovered/Resolved]
  - Pain [Recovered/Resolved]
  - Weight increased [Unknown]
  - Amnesia [Recovered/Resolved]
  - Hepatic enzyme increased [Unknown]
  - Constipation [Recovered/Resolved]
  - Mood swings [Recovered/Resolved]
  - Hallucination [Recovered/Resolved]
  - Hallucination, auditory [Recovered/Resolved]
